FAERS Safety Report 6274244-0 (Version None)
Quarter: 2009Q3

REPORT INFORMATION
  Report Type: 
  Country: None (occurrence: None)
  Receive Date: 20090720
  Receipt Date: 20090709
  Transmission Date: 20100115
  Serious: Yes (Hospitalization, Disabling)
  Sender: FDA-Public Use
  Company Number: JP-ASTRAZENECA-2008AP06553

PATIENT
  Age: 57 Year
  Sex: Female
  Weight: 65 kg

DRUGS (4)
  1. CRESTOR [Suspect]
     Indication: HYPERLIPIDAEMIA
     Route: 048
     Dates: start: 20060926, end: 20080802
  2. LOXONIN [Concomitant]
     Dosage: DOSE UNKNOWN
     Route: 048
  3. CYANOCOBALAMIN [Concomitant]
     Route: 048
     Dates: start: 20060926, end: 20080802
  4. ASPIRIN [Concomitant]
     Route: 048
     Dates: start: 20060926, end: 20080802

REACTIONS (1)
  - STEVENS-JOHNSON SYNDROME [None]
